FAERS Safety Report 7673389-8 (Version None)
Quarter: 2011Q3

REPORT INFORMATION
  Report Type: 
  Country: None (occurrence: None)
  Receive Date: 20110810
  Receipt Date: 20110803
  Transmission Date: 20111222
  Serious: Yes (Death, Life-Threatening, Hospitalization)
  Sender: FDA-Public Use
  Company Number: DE-JNJFOC-20110801249

PATIENT
  Age: 84 Year
  Sex: Female

DRUGS (10)
  1. RISPERDAL [Suspect]
     Indication: VASCULAR DEMENTIA
     Route: 048
     Dates: end: 20040123
  2. ALLOPURINOL [Concomitant]
     Route: 048
     Dates: end: 20040123
  3. ASPIRIN [Concomitant]
     Route: 048
     Dates: end: 20040123
  4. FUROSEMIDE [Concomitant]
     Route: 048
     Dates: end: 20040123
  5. FERRO SANOL [Concomitant]
     Route: 048
     Dates: end: 20040123
  6. LANITOP [Concomitant]
     Route: 048
     Dates: end: 20040123
  7. INSULIN HUMAN [Concomitant]
     Route: 058
     Dates: end: 20040123
  8. ENALAPRIL MALEATE [Concomitant]
     Route: 048
     Dates: end: 20040123
  9. DOMINAL [Suspect]
     Indication: PRODUCT USED FOR UNKNOWN INDICATION
     Route: 048
     Dates: start: 20031222, end: 20040123
  10. PANTOPRAZOLE [Concomitant]
     Route: 048
     Dates: end: 20040123

REACTIONS (5)
  - DIABETES MELLITUS [None]
  - HOSPITALISATION [None]
  - CONDITION AGGRAVATED [None]
  - PNEUMONIA [None]
  - RENAL FAILURE [None]
